FAERS Safety Report 6769270-9 (Version None)
Quarter: 2010Q2

REPORT INFORMATION
  Report Type: 
  Country: None (occurrence: None)
  Receive Date: 20100615
  Receipt Date: 20100607
  Transmission Date: 20101027
  Serious: Yes (Hospitalization, Other)
  Sender: FDA-Public Use
  Company Number: FR-JNJFOC-20100503155

PATIENT
  Sex: Male
  Weight: 65 kg

DRUGS (5)
  1. REMINYL [Suspect]
     Indication: DEMENTIA
     Route: 048
  2. REMINYL [Suspect]
     Route: 048
  3. FENOFIBRATE [Concomitant]
  4. VISKALDIX [Concomitant]
  5. LANZOPRAZOLE [Concomitant]

REACTIONS (5)
  - ATRIAL FIBRILLATION [None]
  - DEPRESSION [None]
  - HYPOTHERMIA [None]
  - OVERDOSE [None]
  - SUICIDE ATTEMPT [None]
